FAERS Safety Report 5173801-2 (Version None)
Quarter: 2006Q4

REPORT INFORMATION
  Report Type: 
  Country: None (occurrence: None)
  Receive Date: 20061214
  Receipt Date: 20061211
  Transmission Date: 20070319
  Serious: Yes (Death)
  Sender: FDA-Public Use
  Company Number: US-GLAXOSMITHKLINE-A0631373A

PATIENT
  Age: 20 Year
  Sex: Female

DRUGS (15)
  1. PAXIL [Suspect]
     Route: 048
  2. LAMICTAL [Suspect]
     Indication: DRUG USE FOR UNKNOWN INDICATION
     Route: 048
  3. ZOLOFT [Concomitant]
  4. EFFEXOR [Concomitant]
  5. ZYPREXA [Concomitant]
  6. PAIN MEDICATION [Concomitant]
  7. ANTICONVULSANT [Concomitant]
  8. VICODIN [Concomitant]
  9. KLONOPIN [Concomitant]
  10. DARVOCET [Concomitant]
  11. DEPAKOTE [Concomitant]
  12. SEROQUEL [Concomitant]
  13. UNSPECIFIED MEDICATIONS [Concomitant]
  14. VIOXX [Concomitant]
  15. BEXTRA [Concomitant]

REACTIONS (13)
  - ANXIETY [None]
  - BURNS SECOND DEGREE [None]
  - BURNS THIRD DEGREE [None]
  - COMPLETED SUICIDE [None]
  - DEPENDENCE [None]
  - DRUG WITHDRAWAL SYNDROME [None]
  - EMOTIONAL DISORDER [None]
  - HALLUCINATION [None]
  - HEAD INJURY [None]
  - HYPERSENSITIVITY [None]
  - MANIA [None]
  - PSYCHOTIC DISORDER [None]
  - SUICIDE ATTEMPT [None]
